FAERS Safety Report 6310382-1 (Version None)
Quarter: 2009Q3

REPORT INFORMATION
  Report Type: 
  Country: None (occurrence: None)
  Receive Date: 20090814
  Receipt Date: 20090807
  Transmission Date: 20100115
  Serious: Yes (Hospitalization, Other)
  Sender: FDA-Public Use
  Company Number: PHHY2009SE33110

PATIENT
  Sex: Male

DRUGS (14)
  1. MYFORTIC [Suspect]
     Indication: RENAL TRANSPLANT
     Dosage: UNK
  2. SANDIMMUNE [Concomitant]
  3. MIMPARA [Concomitant]
  4. OMEPRAZOL [Concomitant]
  5. SIMVASTATIN [Concomitant]
  6. ACETAMINOPHEN [Concomitant]
  7. MYCOSTATIN [Concomitant]
     Route: 048
  8. ETALPHA [Concomitant]
  9. FURIX [Concomitant]
  10. SELOKEN ZOC [Concomitant]
  11. ASPIRIN [Concomitant]
  12. STILNOCT [Concomitant]
  13. PHYSIOTENS [Concomitant]
  14. PREDNISOLONE [Concomitant]

REACTIONS (3)
  - ABDOMINAL PAIN [None]
  - C-REACTIVE PROTEIN INCREASED [None]
  - PERITONITIS [None]
